FAERS Safety Report 14088477 (Version 6)
Quarter: 2018Q4

REPORT INFORMATION
  Report Type: Spontaneous
  Country: US (occurrence: US)
  Receive Date: 20171013
  Receipt Date: 20181223
  Transmission Date: 20190204
  Serious: Yes (Death, Hospitalization)
  Sender: FDA-Public Use
  Company Number: US-ACTELION-A-NJ2017-160914

PATIENT
  Age: 63 Year
  Sex: Female
  Weight: 57.14 kg

DRUGS (3)
  1. TRACLEER [Suspect]
     Active Substance: BOSENTAN
     Indication: PULMONARY ARTERIAL HYPERTENSION
     Dosage: 125 MG, BID
     Route: 048
  2. WARFARIN [Concomitant]
     Active Substance: WARFARIN
  3. SILDENAFIL CITRATE. [Concomitant]
     Active Substance: SILDENAFIL CITRATE

REACTIONS (7)
  - Productive cough [Unknown]
  - Foreign body aspiration [Unknown]
  - Secretion discharge [Unknown]
  - Heart rate increased [Unknown]
  - Sinusitis [Unknown]
  - Cough [Unknown]
  - Death [Fatal]

NARRATIVE: CASE EVENT DATE: 20181212
